FAERS Safety Report 6749300-0 (Version None)
Quarter: 2010Q2

REPORT INFORMATION
  Report Type: 
  Country: None (occurrence: None)
  Receive Date: 20100601
  Receipt Date: 20100517
  Transmission Date: 20101027
  Serious: Yes (Other)
  Sender: FDA-Public Use
  Company Number: US-ASTRAZENECA-2009SE16587

PATIENT
  Sex: Female

DRUGS (6)
  1. SEROQUEL [Suspect]
     Route: 048
     Dates: start: 20030301
  2. ZYPREXA [Concomitant]
     Dates: start: 20030201
  3. CLONAZEPAM [Concomitant]
  4. DILTIAZEM HCL [Concomitant]
     Dates: start: 20030201
  5. DEPAKOTE [Concomitant]
     Dates: start: 20030301
  6. LEXAPRO [Concomitant]
     Dates: start: 20030301

REACTIONS (3)
  - DIABETIC GASTROPARESIS [None]
  - TARDIVE DYSKINESIA [None]
  - TYPE 1 DIABETES MELLITUS [None]
